FAERS Safety Report 9032576 (Version 1)
Quarter: 2013Q1

REPORT INFORMATION
  Report Type: Spontaneous
  Country: US (occurrence: None)
  Receive Date: 20130109
  Receipt Date: 20130109
  Transmission Date: 20140127
  Serious: Yes (Hospitalization)
  Sender: FDA-Public Use
  Company Number: 143724

PATIENT
  Age: 51 Year
  Sex: Female

DRUGS (1)
  1. DAUNORUBICIN [Suspect]
     Indication: ACUTE MYELOID LEUKAEMIA
     Route: 042
     Dates: start: 20120831

REACTIONS (2)
  - Acute pulmonary oedema [None]
  - Cardiac failure [None]
